FAERS Safety Report 7293889-2 (Version None)
Quarter: 2011Q1

REPORT INFORMATION
  Report Type: 
  Country: None (occurrence: None)
  Receive Date: 20110215
  Receipt Date: 20110209
  Transmission Date: 20110831
  Serious: Yes (Death, Other)
  Sender: FDA-Public Use
  Company Number: JP-PFIZER INC-2011021247

PATIENT
  Age: 59 Year
  Sex: Male

DRUGS (2)
  1. LINEZOLID [Suspect]
     Dosage: 600 MG, 2X/DAY
     Route: 048
     Dates: start: 20101203
  2. LINEZOLID [Suspect]
     Indication: ENTEROCOCCAL INFECTION
     Dosage: 600 MG, 2X/DAY
     Route: 041
     Dates: start: 20101110, end: 20101202

REACTIONS (5)
  - PNEUMONIA ASPIRATION [None]
  - PLATELET COUNT DECREASED [None]
  - INFECTIVE SPONDYLITIS [None]
  - RENAL FAILURE CHRONIC [None]
  - ANAEMIA [None]
